FAERS Safety Report 21000624 (Version 2)
Quarter: 2022Q3

REPORT INFORMATION
  Report Type: Spontaneous
  Country: JP (occurrence: JP)
  Receive Date: 20220623
  Receipt Date: 20220708
  Transmission Date: 20221027
  Serious: Yes (Hospitalization, Other)
  Sender: FDA-Public Use
  Company Number: JP-TEVA-2022-JP-2047587

PATIENT
  Age: 6 Decade
  Sex: Male

DRUGS (5)
  1. IRINOTECAN [Suspect]
     Active Substance: IRINOTECAN
     Indication: Colon cancer
     Dosage: FOLFIRI AS A SECOND-LINE CHEMOTHERAPY; RECEIVED ONE COURSE
     Route: 065
  2. LEUCOVORIN [Suspect]
     Active Substance: LEUCOVORIN
     Indication: Colon cancer
     Dosage: FOLFIRI AS A SECOND-LINE CHEMOTHERAPY; RECEIVED ONE COURSE
     Route: 065
  3. FLUOROURACIL [Suspect]
     Active Substance: FLUOROURACIL
     Indication: Colon cancer
     Dosage: FOLFIRI AS A SECOND-LINE CHEMOTHERAPY; RECEIVED ONE COURSE
     Route: 065
  4. PANITUMUMAB [Suspect]
     Active Substance: PANITUMUMAB
     Indication: Colon cancer
     Dosage: PANITUMUMAB MONOTHERAPY AS THIRD-LINE CHEMOTHERAPY
     Route: 065
  5. PIPERACILLIN SODIUM\TAZOBACTAM SODIUM [Concomitant]
     Active Substance: PIPERACILLIN SODIUM\TAZOBACTAM SODIUM
     Indication: Antibiotic therapy
     Route: 065

REACTIONS (4)
  - Interstitial lung disease [Unknown]
  - Colitis [Recovering/Resolving]
  - Haematochezia [Recovered/Resolved]
  - Anaemia [Unknown]
